FAERS Safety Report 8560994 (Version 2)
Quarter: 2014Q1

REPORT INFORMATION
  Report Type: Spontaneous
  Country: US (occurrence: US)
  Receive Date: 20120514
  Receipt Date: 20140306
  Transmission Date: 20141002
  Serious: Yes (Death, Hospitalization)
  Sender: FDA-Public Use
  Company Number: US-GLAXOSMITHKLINE-A0869353A

PATIENT
  Age: 48 Year
  Sex: Male
  Weight: 159.1 kg

DRUGS (7)
  1. AVANDIA [Suspect]
     Indication: DIABETES MELLITUS
     Dosage: 4MG TWICE PER DAY
     Route: 048
     Dates: start: 20060316, end: 200902
  2. AVANDAMET [Suspect]
     Indication: DIABETES MELLITUS
     Route: 048
     Dates: start: 20050927, end: 20080302
  3. JANUVIA [Concomitant]
  4. HCTZ [Concomitant]
  5. LYRICA [Concomitant]
  6. LISINOPRIL [Concomitant]
  7. METFORMIN [Concomitant]

REACTIONS (3)
  - Acute myocardial infarction [Fatal]
  - Cerebrovascular accident [Unknown]
  - Coronary artery disease [Unknown]
